APPROVED DRUG PRODUCT: THEOPHYLLINE
Active Ingredient: THEOPHYLLINE
Strength: 80MG/15ML
Dosage Form/Route: ELIXIR;ORAL
Application: A089626 | Product #001
Applicant: SUN PHARMA CANADA INC
Approved: Oct 28, 1988 | RLD: No | RS: No | Type: DISCN